FAERS Safety Report 10659795 (Version 4)
Quarter: 2015Q1

REPORT INFORMATION
  Report Type: Spontaneous
  Country: DK (occurrence: JP)
  Receive Date: 20141217
  Receipt Date: 20150122
  Transmission Date: 20150720
  Serious: Yes (Life-Threatening)
  Sender: FDA-Public Use
  Company Number: JP-FRI-1000073111

PATIENT
  Age: 27 Year
  Sex: Male
  Weight: 62 kg

DRUGS (8)
  1. ROHYPNOL [Suspect]
     Active Substance: FLUNITRAZEPAM
     Dosage: 120 MG
     Route: 048
     Dates: start: 20141208, end: 20141208
  2. LEXAPRO [Suspect]
     Active Substance: ESCITALOPRAM OXALATE
     Route: 048
  3. MYONAL [Suspect]
     Active Substance: EPERISONE HYDROCHLORIDE
     Indication: TENSION HEADACHE
     Route: 048
  4. CELECOX [Suspect]
     Active Substance: CELECOXIB
     Indication: TENSION HEADACHE
     Route: 048
  5. MYONAL [Suspect]
     Active Substance: EPERISONE HYDROCHLORIDE
     Dosage: 4500 MG
     Route: 048
  6. LEXAPRO [Suspect]
     Active Substance: ESCITALOPRAM OXALATE
     Indication: DEPRESSION
     Dosage: 30 TABLETS
     Route: 048
     Dates: start: 20141208, end: 20141208
  7. ROHYPNOL [Suspect]
     Active Substance: FLUNITRAZEPAM
     Indication: PRODUCT USED FOR UNKNOWN INDICATION
     Route: 048
  8. CELECOX [Suspect]
     Active Substance: CELECOXIB
     Dosage: 6000 MG
     Route: 048
     Dates: start: 20141208, end: 20141208

REACTIONS (5)
  - Myocarditis [Recovered/Resolved]
  - Hypothermia [Recovered/Resolved]
  - Electrocardiogram abnormal [Recovered/Resolved]
  - Altered state of consciousness [Recovered/Resolved]
  - Overdose [Recovered/Resolved]

NARRATIVE: CASE EVENT DATE: 20141208
